FAERS Safety Report 5613660-4 (Version None)
Quarter: 2008Q1

REPORT INFORMATION
  Report Type: 
  Country: None (occurrence: None)
  Receive Date: 20080129
  Receipt Date: 20080107
  Transmission Date: 20080703
  Serious: Yes (Disabling)
  Sender: FDA-Public Use
  Company Number: LUP-0208

PATIENT
  Age: 64 Year
  Sex: Female
  Weight: 99.7913 kg

DRUGS (4)
  1. LISINOPRIL [Suspect]
     Indication: HYPERTENSION
     Dosage: 20 MG QD PO, 30 MG QD PO, 40 MG QD PO
     Route: 048
     Dates: start: 20070101, end: 20070101
  2. LISINOPRIL [Suspect]
     Indication: HYPERTENSION
     Dosage: 20 MG QD PO, 30 MG QD PO, 40 MG QD PO
     Route: 048
     Dates: start: 20070801, end: 20070101
  3. LISINOPRIL [Suspect]
     Indication: HYPERTENSION
     Dosage: 20 MG QD PO, 30 MG QD PO, 40 MG QD PO
     Route: 048
     Dates: start: 20070101, end: 20071201
  4. FUROSEMIDE [Concomitant]

REACTIONS (5)
  - ASTHENIA [None]
  - BLOOD PRESSURE SYSTOLIC INCREASED [None]
  - DYSPNOEA [None]
  - FATIGUE [None]
  - GAIT DISTURBANCE [None]
